FAERS Safety Report 6091135-9 (Version None)
Quarter: 2009Q1

REPORT INFORMATION
  Report Type: 
  Country: None (occurrence: None)
  Receive Date: 20090225
  Receipt Date: 20090213
  Transmission Date: 20090719
  Serious: Yes (Hospitalization)
  Sender: FDA-Public Use
  Company Number: NL-PFIZER INC-2009165108

PATIENT

DRUGS (6)
  1. EXEMESTANE [Suspect]
     Indication: BREAST CANCER
     Dosage: 25 MG, 1X/DAY
     Route: 048
     Dates: start: 20021217, end: 20071216
  2. TOLTERODINE TARTRATE [Concomitant]
     Dosage: 4MG OR 2MG DAILY
     Route: 048
     Dates: start: 20040329
  3. TRIMETHOPRIM [Concomitant]
     Dosage: UNK, DAILY
     Route: 048
     Dates: start: 20070615, end: 20070625
  4. SIMVASTATIN [Concomitant]
     Dosage: 40 MG, 1X/DAY
     Route: 048
     Dates: start: 20060321
  5. METFORMIN [Concomitant]
     Dosage: 1 G, 2X/DAY
     Route: 048
     Dates: start: 20030311
  6. LISINOPRIL [Concomitant]
     Dosage: 5 MG, 1X/DAY
     Route: 048
     Dates: start: 20030603

REACTIONS (1)
  - MULTIPLE SCLEROSIS RELAPSE [None]
